FAERS Safety Report 8450493 (Version 3)
Quarter: 2013Q3

REPORT INFORMATION
  Report Type: Spontaneous
  Country: PL (occurrence: PL)
  Receive Date: 20120309
  Receipt Date: 20130726
  Transmission Date: 20140515
  Serious: Yes (Hospitalization, Other)
  Sender: FDA-Public Use
  Company Number: PL-SANOFI-AVENTIS-2012SA013961

PATIENT
  Age: 53 Year
  Sex: Female
  Weight: 53 kg

DRUGS (10)
  1. ARAVA [Suspect]
     Indication: RHEUMATOID ARTHRITIS
     Route: 048
     Dates: start: 201105, end: 201202
  2. ARAVA [Suspect]
     Indication: RHEUMATOID ARTHRITIS
     Dosage: DOSE REDUCED
     Route: 048
     Dates: start: 201202, end: 201203
  3. MEDROL [Concomitant]
     Indication: RHEUMATOID ARTHRITIS
     Dosage: 4-8 MG/DAY
     Route: 048
     Dates: start: 2007
  4. EUTHYROX [Concomitant]
     Indication: HYPOTHYROIDISM
     Dosage: AT GRADUALLY INCREASED DOSES UPTO 75 MCG DAILY
     Route: 048
     Dates: start: 200902, end: 200907
  5. EUTHYROX [Concomitant]
     Indication: HYPOTHYROIDISM
     Dosage: DOSE REDUCED
     Route: 048
     Dates: start: 200907, end: 201102
  6. EUTHYROX [Concomitant]
     Indication: HYPOTHYROIDISM
     Route: 048
     Dates: start: 201102, end: 201105
  7. EUTHYROX [Concomitant]
     Indication: HYPOTHYROIDISM
     Route: 048
     Dates: start: 201111, end: 201202
  8. EUTHYROX [Concomitant]
     Indication: HYPOTHYROIDISM
  9. PREDNISONE [Concomitant]
     Indication: RHEUMATOID ARTHRITIS
     Dates: start: 2005
  10. MELOXICAM [Concomitant]
     Indication: RHEUMATOID ARTHRITIS

REACTIONS (6)
  - Arthritis [Not Recovered/Not Resolved]
  - Movement disorder [Not Recovered/Not Resolved]
  - Hyperthyroidism [Recovering/Resolving]
  - Malaise [Recovering/Resolving]
  - Asthenia [Recovering/Resolving]
  - Hepatic enzyme increased [Recovered/Resolved]
